FAERS Safety Report 8492964-4 (Version None)
Quarter: 2012Q3

REPORT INFORMATION
  Report Type: 
  Country: None (occurrence: None)
  Receive Date: 20120706
  Receipt Date: 20120703
  Transmission Date: 20120928
  Serious: Yes (Hospitalization)
  Sender: FDA-Public Use
  Company Number: US-GLAXOSMITHKLINE-B0812644A

PATIENT
  Age: 8 Year
  Sex: Male
  Weight: 48 kg

DRUGS (4)
  1. SULFAMETHOXAZOLE AND TRIMETHOPRIM [Concomitant]
     Dosage: 80MG TWICE PER DAY
     Route: 048
  2. METHOTREXATE [Concomitant]
     Dosage: 12.5MG WEEKLY
     Route: 048
  3. ONDANSETRON [Suspect]
     Indication: PRODUCT USED FOR UNKNOWN INDICATION
     Route: 048
  4. MERCAPTOPURINE [Concomitant]
     Dosage: 50MG PER DAY
     Route: 048

REACTIONS (4)
  - INTENTIONAL OVERDOSE [None]
  - HYPOTENSION [None]
  - VOMITING [None]
  - ANAEMIA MACROCYTIC [None]
